FAERS Safety Report 23826365 (Version 1)
Quarter: 2024Q2

REPORT INFORMATION
  Report Type: Spontaneous
  Country: US (occurrence: US)
  Receive Date: 20240507
  Receipt Date: 20240507
  Transmission Date: 20240716
  Serious: No
  Sender: FDA-Public Use
  Company Number: US-UCBSA-2024001893

PATIENT
  Age: 33 Year
  Sex: Female

DRUGS (2)
  1. CIMZIA [Suspect]
     Active Substance: CERTOLIZUMAB PEGOL
     Indication: Rheumatoid arthritis
     Dosage: 200 MILLIGRAM, EV 2 WEEKS(QOW)
     Route: 058
     Dates: start: 202310
  2. QULIPTA [Concomitant]
     Active Substance: ATOGEPANT
     Indication: Migraine
     Dosage: UNK

REACTIONS (4)
  - Migraine [Unknown]
  - Dehydration [Unknown]
  - Abdominal discomfort [Unknown]
  - Muscle spasms [Unknown]

NARRATIVE: CASE EVENT DATE: 20240108
